FAERS Safety Report 7991161-6 (Version None)
Quarter: 2011Q4

REPORT INFORMATION
  Report Type: 
  Country: None (occurrence: None)
  Receive Date: 20111123
  Receipt Date: 20111024
  Transmission Date: 20120403
  Serious: No
  Sender: FDA-Public Use
  Company Number: 337842

PATIENT
  Age: 43 Year
  Sex: Female

DRUGS (2)
  1. VICTOZA [Suspect]
     Indication: GLUCOSE TOLERANCE IMPAIRED
     Dosage: SUBCUTANEOUS
     Route: 058
  2. VICTOZA [Suspect]

REACTIONS (7)
  - CONSTIPATION [None]
  - INJECTION SITE PRURITUS [None]
  - NAUSEA [None]
  - INJECTION SITE HYPERSENSITIVITY [None]
  - INJECTION SITE RASH [None]
  - HEADACHE [None]
  - INJECTION SITE HAEMATOMA [None]
